FAERS Safety Report 6551590-4 (Version None)
Quarter: 2010Q1

REPORT INFORMATION
  Report Type: 
  Country: None (occurrence: None)
  Receive Date: 20100126
  Receipt Date: 20100119
  Transmission Date: 20100710
  Serious: No
  Sender: FDA-Public Use
  Company Number: US-BAYER-200941086NA

PATIENT
  Age: 10 Year
  Sex: Male
  Weight: 51 kg

DRUGS (5)
  1. MAGNEVIST [Suspect]
     Indication: NUCLEAR MAGNETIC RESONANCE IMAGING
     Dosage: TOTAL DAILY DOSE: 10.2 ML
     Dates: start: 20091124, end: 20091124
  2. TYLENOL [Concomitant]
  3. MORPHINE [Concomitant]
  4. MOTRIN [Concomitant]
  5. VANCOMYCIN [Concomitant]

REACTIONS (1)
  - CHEST PAIN [None]
